FAERS Safety Report 23420366 (Version 2)
Quarter: 2024Q1

REPORT INFORMATION
  Report Type: Spontaneous
  Country: IE (occurrence: IE)
  Receive Date: 20240119
  Receipt Date: 20240302
  Transmission Date: 20240409
  Serious: Yes (Hospitalization, Other)
  Sender: FDA-Public Use
  Company Number: IE-Accord-393623

PATIENT
  Age: 9 Decade
  Sex: Male

DRUGS (1)
  1. APIXABAN [Suspect]
     Active Substance: APIXABAN
     Indication: Anticoagulant therapy
     Dosage: TWICE DAILY
     Route: 048

REACTIONS (3)
  - Abdominal wall haematoma [Recovered/Resolved]
  - Haemoglobin decreased [Unknown]
  - Abdominal wall haemorrhage [Unknown]
